FAERS Safety Report 20725953 (Version 6)
Quarter: 2022Q4

REPORT INFORMATION
  Report Type: Report from Study
  Country: TW (occurrence: TW)
  Receive Date: 20220419
  Receipt Date: 20221013
  Transmission Date: 20230112
  Serious: Yes (Hospitalization)
  Sender: FDA-Public Use
  Company Number: TW-PFIZER INC-202200565433

PATIENT
  Age: 56 Year
  Sex: Male
  Weight: 68.1 kg

DRUGS (21)
  1. ENCORAFENIB [Suspect]
     Active Substance: ENCORAFENIB
     Indication: Non-small cell lung cancer
     Dosage: 450 MG, 1X/DAY
     Route: 048
     Dates: start: 20220329, end: 20220411
  2. BINIMETINIB [Suspect]
     Active Substance: BINIMETINIB
     Indication: Non-small cell lung cancer
     Dosage: 45 MG, 2X/DAY
     Route: 048
     Dates: start: 20220329, end: 20220410
  3. SASANLIMAB [Suspect]
     Active Substance: SASANLIMAB
     Indication: Non-small cell lung cancer
     Dosage: 300 MG, EVERY 4 WEEK (Q4W)
     Route: 058
     Dates: start: 20220329
  4. BISACODYL [Concomitant]
     Active Substance: BISACODYL
     Indication: Constipation
     Dosage: 1 TABLET, AT BEDTIME (HS)
     Route: 048
     Dates: start: 20220310, end: 20220411
  5. SENNOSIDES A AND B [Concomitant]
     Active Substance: SENNOSIDES A AND B
     Indication: Constipation
     Dosage: 3 TABLETS, AT BEDTIME (HS)
     Route: 048
     Dates: start: 20220217
  6. ACETAMINOPHEN [Concomitant]
     Active Substance: ACETAMINOPHEN
     Indication: Pain
     Dosage: 1 TABLET, AS NEEDED (PRN)
     Route: 048
     Dates: start: 20220325, end: 20220410
  7. LEVOCETIRIZINE [Concomitant]
     Active Substance: LEVOCETIRIZINE
     Indication: Nasal congestion
     Dosage: 1 TABLET, QD
     Route: 048
     Dates: start: 20220318, end: 20220411
  8. LORAZEPAM [Concomitant]
     Active Substance: LORAZEPAM
     Indication: Insomnia
     Dosage: 1 TABLET, AT BEDTIME (HS)
     Route: 048
     Dates: start: 20220221, end: 20220405
  9. CEFOPERAZONE SODIUM\SULBACTAM SODIUM [Concomitant]
     Active Substance: CEFOPERAZONE SODIUM\SULBACTAM SODIUM
     Indication: Pyrexia
     Dosage: IVD, 2 VIAL, EVERY 12 H
     Dates: start: 20220406, end: 20220407
  10. CEFOPERAZONE SODIUM\SULBACTAM SODIUM [Concomitant]
     Active Substance: CEFOPERAZONE SODIUM\SULBACTAM SODIUM
     Dosage: IVD, 2 VIAL, STAT
     Dates: start: 20220406, end: 20220406
  11. ULTRACET [Concomitant]
     Active Substance: ACETAMINOPHEN\TRAMADOL HYDROCHLORIDE
     Indication: Pain
     Dosage: [PARACETAMOL 325MG]/[TRAMADOL HYDROCHLORIDE 37.5 MG], 1 TAB, AS NEEDED
     Route: 048
     Dates: start: 20220223, end: 20220411
  12. MORPHINE [Concomitant]
     Active Substance: MORPHINE
     Indication: Pain
     Dosage: 1 TAB, Q8H
     Route: 048
     Dates: start: 20220220
  13. CHLORZOXAZONE [Concomitant]
     Active Substance: CHLORZOXAZONE
     Indication: Pain
     Dosage: 1 TAB, QID
     Route: 048
     Dates: start: 20220301, end: 20220411
  14. MOPRIDE [CISAPRIDE] [Concomitant]
     Indication: Vomiting
     Dosage: 1 TAB, 3X/DAY, MOSAPRIDE FC
     Route: 048
     Dates: start: 20220406, end: 20220411
  15. LORATADINE\PSEUDOEPHEDRINE SULFATE [Concomitant]
     Active Substance: LORATADINE\PSEUDOEPHEDRINE SULFATE
     Indication: Nasal congestion
     Dosage: 1 TAB, 2X/DAY, LORAPSEUDO SR FC
     Route: 048
     Dates: start: 20220406
  16. BENZONATATE [Concomitant]
     Active Substance: BENZONATATE
     Indication: Cough
     Dosage: 1 CAP, 2X/DAY
     Route: 048
     Dates: start: 20220217
  17. METFORMIN HYDROCHLORIDE\VILDAGLIPTIN [Concomitant]
     Active Substance: METFORMIN HYDROCHLORIDE\VILDAGLIPTIN
     Indication: Type 2 diabetes mellitus
     Dosage: 1 TAB, BID
     Route: 048
     Dates: start: 20220222
  18. FLUTICASONE FUROATE [Concomitant]
     Active Substance: FLUTICASONE FUROATE
     Indication: Nasal congestion
     Dosage: 1 PUFF, QD, AVAMYS NASAL SPRAY
     Route: 045
     Dates: start: 20220406, end: 20220411
  19. NEXIUM [Concomitant]
     Active Substance: ESOMEPRAZOLE MAGNESIUM
     Indication: Abdominal pain upper
     Dosage: 1 TAB, QDAC
     Route: 048
     Dates: start: 20220325
  20. TAMSULOSIN HYDROCHLORIDE [Concomitant]
     Active Substance: TAMSULOSIN HYDROCHLORIDE
     Indication: Benign prostatic hyperplasia
     Dosage: HARNALIDGE OCAS PR
     Dates: start: 20220318, end: 20220401
  21. DETRUSITOL SR [Concomitant]
     Active Substance: TOLTERODINE TARTRATE
     Indication: Benign prostatic hyperplasia
     Dosage: UNK
     Dates: start: 20220318, end: 20220401

REACTIONS (2)
  - Hepatitis [Recovered/Resolved]
  - Haematuria [Recovered/Resolved]

NARRATIVE: CASE EVENT DATE: 20220411
